FAERS Safety Report 5876701-5 (Version None)
Quarter: 2008Q3

REPORT INFORMATION
  Report Type: 
  Country: None (occurrence: None)
  Receive Date: 20080909
  Receipt Date: 20080909
  Transmission Date: 20090109
  Serious: Yes (Other)
  Sender: FDA-Public Use
  Company Number: None

PATIENT
  Age: 33 Year
  Sex: Female
  Weight: 77.5651 kg

DRUGS (1)
  1. FENTANYL [Suspect]
     Indication: PAIN
     Dosage: 75 MCG Q 72 HRS TRANSDERMAL
     Route: 062
     Dates: start: 20080901, end: 20080908

REACTIONS (1)
  - DRUG WITHDRAWAL SYNDROME [None]
